FAERS Safety Report 7609104-3 (Version None)
Quarter: 2011Q3

REPORT INFORMATION
  Report Type: 
  Country: None (occurrence: None)
  Receive Date: 20110714
  Receipt Date: 20110711
  Transmission Date: 20111222
  Serious: Yes (Hospitalization, Other)
  Sender: FDA-Public Use
  Company Number: FR-TEVA-265609ISR

PATIENT
  Sex: Male
  Weight: 49.2 kg

DRUGS (10)
  1. ZOLPIDEM [Concomitant]
  2. METOCLOPRAMIDE [Concomitant]
  3. LOPERAMIDE [Concomitant]
     Indication: DIARRHOEA
  4. LENALIDOMIDE [Suspect]
     Indication: MULTIPLE MYELOMA
     Dosage: 15 MILLIGRAM;
     Route: 048
     Dates: start: 20100121, end: 20100424
  5. LENALIDOMIDE [Suspect]
     Route: 048
  6. FERROUS SULFATE TAB [Concomitant]
     Indication: ANAEMIA
     Route: 048
  7. SMECTITE [Concomitant]
  8. ASPIRIN [Concomitant]
     Dosage: 75 MILLIGRAM;
  9. DEXAMETHASONE [Suspect]
     Indication: MULTIPLE MYELOMA
     Dates: start: 20100121, end: 20100424
  10. BETAHISTINE HYDROCHLORIDE [Concomitant]
     Indication: DIZZINESS

REACTIONS (2)
  - RENAL FAILURE [None]
  - ABDOMINAL PAIN UPPER [None]
